FAERS Safety Report 7951399-0 (Version None)
Quarter: 2011Q4

REPORT INFORMATION
  Report Type: 
  Country: None (occurrence: None)
  Receive Date: 20111201
  Receipt Date: 20111121
  Transmission Date: 20120403
  Serious: No
  Sender: FDA-Public Use
  Company Number: US-B.I. PHARMACEUTICALS,INC./RIDGEFIELD-2011-BP-26673BP

PATIENT
  Sex: Female

DRUGS (4)
  1. TOPROL-XL [Concomitant]
     Indication: ATRIAL FIBRILLATION
  2. PRADAXA [Suspect]
     Indication: ATRIAL FIBRILLATION
     Dosage: 300 MG
     Route: 048
     Dates: start: 20111107
  3. LASIX [Concomitant]
     Indication: FLUID RETENTION
  4. CARDIZEM [Concomitant]
     Indication: ATRIAL FIBRILLATION

REACTIONS (3)
  - DYSPEPSIA [None]
  - DYSPHAGIA [None]
  - OESOPHAGEAL PAIN [None]
